FAERS Safety Report 7938203-1 (Version None)
Quarter: 2011Q4

REPORT INFORMATION
  Report Type: 
  Country: None (occurrence: None)
  Receive Date: 20111123
  Receipt Date: 20110913
  Transmission Date: 20120403
  Serious: No
  Sender: FDA-Public Use
  Company Number: US-BRISTOL-MYERS SQUIBB COMPANY-16055972

PATIENT
  Age: 30 Year
  Sex: Male

DRUGS (2)
  1. ONGLYZA [Suspect]
  2. METFORMIN HCL [Concomitant]

REACTIONS (1)
  - NAUSEA [None]
